FAERS Safety Report 5378468-6 (Version None)
Quarter: 2007Q3

REPORT INFORMATION
  Report Type: 
  Country: None (occurrence: None)
  Receive Date: 20070705
  Receipt Date: 20070630
  Transmission Date: 20080115
  Serious: Yes (Disabling)
  Sender: FDA-Public Use
  Company Number: EG-AVENTIS-200715714GDDC

PATIENT
  Age: 50 Year
  Sex: Male
  Weight: 80 kg

DRUGS (3)
  1. AMARYL [Suspect]
     Route: 048
     Dates: start: 20070414
  2. CIDOPHAGE [Concomitant]
     Indication: DIABETES MELLITUS
     Dosage: DOSE: 1X2
     Route: 048
  3. OSCAL                              /00108001/ [Concomitant]
     Dosage: DOSE: 1X1
     Route: 048
     Dates: start: 20070526

REACTIONS (2)
  - CONVULSIONS LOCAL [None]
  - MUSCLE SPASMS [None]
